FAERS Safety Report 6649953-1 (Version None)
Quarter: 2010Q1

REPORT INFORMATION
  Report Type: 
  Country: None (occurrence: None)
  Receive Date: 20100325
  Receipt Date: 20100311
  Transmission Date: 20100710
  Serious: No
  Sender: FDA-Public Use
  Company Number: 2010BI000388

PATIENT
  Age: 29 Year
  Sex: Female

DRUGS (1)
  1. TYSABRI [Suspect]
     Indication: MULTIPLE SCLEROSIS
     Route: 042
     Dates: start: 20080527

REACTIONS (10)
  - ABDOMINAL PAIN UPPER [None]
  - COUGH [None]
  - FEELING HOT [None]
  - H1N1 INFLUENZA [None]
  - HYPOAESTHESIA [None]
  - MULTIPLE SCLEROSIS RELAPSE [None]
  - NASOPHARYNGITIS [None]
  - PERTUSSIS [None]
  - WHITE BLOOD CELL COUNT INCREASED [None]
  - YELLOW FEVER [None]
